FAERS Safety Report 8591008-3 (Version None)
Quarter: 2012Q3

REPORT INFORMATION
  Report Type: 
  Country: None (occurrence: None)
  Receive Date: 20120813
  Receipt Date: 20120809
  Transmission Date: 20120928
  Serious: Yes (Hospitalization)
  Sender: FDA-Public Use
  Company Number: FR-SANOFI-AVENTIS-2012SA057061

PATIENT
  Age: 86 Year
  Sex: Female

DRUGS (10)
  1. ISOPTIN [Concomitant]
     Route: 048
  2. FEMARA [Concomitant]
     Route: 048
  3. EXELON [Concomitant]
     Route: 048
  4. ASPIRIN [Suspect]
     Route: 048
     Dates: start: 20120617, end: 20120617
  5. PLAVIX [Suspect]
     Route: 048
     Dates: start: 20120617, end: 20120617
  6. PREVISCAN [Suspect]
     Route: 048
     Dates: start: 20120617, end: 20120617
  7. CANDESARTAN CILEXETIL AND HYDROCHLOROTHIAZIDE [Concomitant]
     Route: 048
  8. CRESTOR [Concomitant]
     Route: 048
  9. CYMBALTA [Suspect]
     Route: 048
     Dates: end: 20120628
  10. NITROGLYCERIN [Concomitant]
     Indication: PAIN

REACTIONS (4)
  - GASTRIC ULCER HAEMORRHAGE [None]
  - INTERNATIONAL NORMALISED RATIO INCREASED [None]
  - ANAEMIA [None]
  - GASTROINTESTINAL HAEMORRHAGE [None]
